FAERS Safety Report 11085710 (Version 2)
Quarter: 2015Q2

REPORT INFORMATION
  Report Type: Spontaneous
  Country: US (occurrence: US)
  Receive Date: 20150503
  Receipt Date: 20150525
  Transmission Date: 20150821
  Serious: Yes (Other)
  Sender: FDA-Public Use
  Company Number: US-JNJFOC-20130717805

PATIENT
  Age: 21 Year
  Sex: Female
  Weight: 86.18 kg

DRUGS (1)
  1. ORTHO-CEPT [Suspect]
     Active Substance: DESOGESTREL\ETHINYL ESTRADIOL
     Indication: CONTRACEPTION
     Route: 048
     Dates: start: 2013

REACTIONS (3)
  - Exposure during pregnancy [Unknown]
  - Malaise [Unknown]
  - Pregnancy on oral contraceptive [Not Recovered/Not Resolved]

NARRATIVE: CASE EVENT DATE: 2013
